FAERS Safety Report 15524454 (Version 1)
Quarter: 2018Q4

REPORT INFORMATION
  Report Type: Spontaneous
  Country: FR (occurrence: FR)
  Receive Date: 20181018
  Receipt Date: 20181018
  Transmission Date: 20190205
  Serious: Yes (Other)
  Sender: FDA-Public Use
  Company Number: FR-TEVA-2018-FR-965472

PATIENT
  Age: 17 Year
  Sex: Male

DRUGS (2)
  1. LOPERAMIDE BASE [Suspect]
     Active Substance: LOPERAMIDE
     Indication: SUICIDE ATTEMPT
     Route: 048
     Dates: start: 20180130, end: 20180130
  2. TRAMADOL (CHLORHYDRATE DE) [Suspect]
     Active Substance: TRAMADOL HYDROCHLORIDE
     Indication: SUICIDE ATTEMPT
     Route: 048
     Dates: start: 20180130, end: 20180130

REACTIONS (6)
  - Blood bilirubin increased [Recovered/Resolved]
  - Toxicity to various agents [Recovered/Resolved]
  - Bradypnoea [Recovered/Resolved]
  - Oxygen saturation decreased [Recovered/Resolved]
  - Vomiting [Recovered/Resolved]
  - Psychomotor skills impaired [Recovered/Resolved]

NARRATIVE: CASE EVENT DATE: 20180130
